FAERS Safety Report 21375039 (Version 1)
Quarter: 2022Q3

REPORT INFORMATION
  Report Type: Spontaneous
  Country: DE (occurrence: DE)
  Receive Date: 20220926
  Receipt Date: 20220926
  Transmission Date: 20221026
  Serious: Yes (Hospitalization)
  Sender: FDA-Public Use
  Company Number: DE-ADRED-07315-01

PATIENT
  Age: 81 Year
  Sex: Male
  Weight: 64 kg

DRUGS (3)
  1. ENOXAPARIN SODIUM [Suspect]
     Active Substance: ENOXAPARIN SODIUM
     Dosage: 60MG/0.6ML, 1-0-1-0, PRE-FILLED SYRINGES
     Route: 058
  2. SIMVASTATIN [Concomitant]
     Active Substance: SIMVASTATIN
     Dosage: 20 MG, 0-0-0.5-0, TABLETS
     Route: 048
  3. METAMIZOLE [Concomitant]
     Active Substance: METAMIZOLE
     Dosage: 500 MG/ML, 30-30-30-30, DROPS
     Route: 048

REACTIONS (6)
  - Dyschezia [Unknown]
  - Penile pain [Unknown]
  - Chills [Unknown]
  - Pyrexia [Unknown]
  - Haematuria [Unknown]
  - Prostatitis [Unknown]
